FAERS Safety Report 11866826 (Version 1)
Quarter: 2015Q4

REPORT INFORMATION
  Report Type: Spontaneous
  Country: US (occurrence: US)
  Receive Date: 20151224
  Receipt Date: 20151224
  Transmission Date: 20160305
  Serious: No
  Sender: FDA-Public Use
  Company Number: US-PFIZER INC-2015366717

PATIENT
  Age: 73 Year
  Sex: Male

DRUGS (11)
  1. TYLENOL [Concomitant]
     Active Substance: ACETAMINOPHEN
     Dosage: UNK (DOSE UNSPECIFIED, TAKES 4-6 TABLETS PER DAY)
  2. TESTOSTERONE. [Concomitant]
     Active Substance: TESTOSTERONE
     Indication: ASTHENIA
     Dosage: UNK (SHOT EVERY TWO WEEKS, DOSE UNKNOWN)
  3. SUPREP BOWEL PREP [Concomitant]
     Active Substance: MAGNESIUM SULFATE\POTASSIUM SULFATE\SODIUM SULFATE
     Dosage: UNK (17.5 - 3.13-1.6 GRAM ORAL RECON SOLN, TAKE AS DIRECTED)
     Dates: start: 20130422
  4. SUTENT [Suspect]
     Active Substance: SUNITINIB MALATE
     Dosage: UNK (CAPSULE BY MOUTH 1 TIME PER DAY)
     Route: 048
     Dates: start: 201510, end: 20151119
  5. METFORMIN [Concomitant]
     Active Substance: METFORMIN HYDROCHLORIDE
     Indication: DIABETES MELLITUS
     Dosage: 500 MG, AS NEEDED (TAKES AS NEEDED FOR BLOOD SUGAR. SAYS HE IS BARELY DIABETIC)
     Route: 048
  6. SUTENT [Suspect]
     Active Substance: SUNITINIB MALATE
     Indication: RENAL CANCER
     Dosage: 50 MG, DAILY (ONE PO QD)
     Route: 048
  7. TYLENOL [Concomitant]
     Active Substance: ACETAMINOPHEN
     Indication: PAIN
     Dosage: 325MG 2X/DAY AS NEEDED
     Route: 048
  8. HYDROCODONE [Concomitant]
     Active Substance: HYDROCODONE
     Indication: PAIN
     Dosage: UNK, AS NEEDED
  9. CELEBREX [Concomitant]
     Active Substance: CELECOXIB
     Indication: ARTHRITIS
     Dosage: UNK (TAKES AS NEEDED, MAY TAKE TWO TABLETS PER WEEK)
  10. ONDANSETRON HCL [Concomitant]
     Active Substance: ONDANSETRON HYDROCHLORIDE
     Dosage: 8 MG, UNK (TAKE 1 TABLET (8MG) BY ORAL ROUTE EVERY 6 HOURS PM)
     Route: 048
     Dates: start: 20140128
  11. TAXOL/CARBO [Concomitant]
     Dosage: UNK (TAXOL 100MG/ 500CC NS IV OVER 3 HOURS CARBO 200MG/ 500CC NS IV OVER 1 HOUR WEEKLY TIMES 6)

REACTIONS (10)
  - Asthenia [Recovering/Resolving]
  - Skin exfoliation [Recovering/Resolving]
  - Dyspnoea [Recovering/Resolving]
  - Genital erythema [Recovering/Resolving]
  - Abdominal discomfort [Recovering/Resolving]
  - Nausea [Recovering/Resolving]
  - Constipation [Recovering/Resolving]
  - Dyspepsia [Recovering/Resolving]
  - Oral pain [Recovering/Resolving]
  - Decreased appetite [Recovering/Resolving]

NARRATIVE: CASE EVENT DATE: 201511
